FAERS Safety Report 23360224 (Version 1)
Quarter: 2024Q1

REPORT INFORMATION
  Report Type: Other
  Country: PT (occurrence: PT)
  Receive Date: 20240103
  Receipt Date: 20240103
  Transmission Date: 20240410
  Serious: Yes (Death, Hospitalization, Other)
  Sender: FDA-Public Use
  Company Number: PT-MED-2023-052

PATIENT

DRUGS (3)
  1. DEXAMETHASONE [Suspect]
     Active Substance: DEXAMETHASONE
     Indication: Haemophagocytic lymphohistiocytosis
     Dosage: 10 MG/M2 DAILY, FOR TWO WEEKS, WITH PROGRESSIVE TAPERING
     Route: 065
  2. ETOPOSIDE [Suspect]
     Active Substance: ETOPOSIDE
     Indication: Haemophagocytic lymphohistiocytosis
     Dosage: 150 MG/M2 BI-WEEKLY, FOR THE FIRST TWO WEEKS, THEN WEEKLY
     Route: 065
  3. ETOPOSIDE [Suspect]
     Active Substance: ETOPOSIDE
     Dosage: 150 MG/M2 BI-WEEKLY, FOR THE FIRST TWO WEEKS, THEN WEEKLY
     Route: 065

REACTIONS (3)
  - Off label use [Fatal]
  - Pneumonia [Fatal]
  - Febrile neutropenia [Fatal]
